FAERS Safety Report 6829753-X (Version None)
Quarter: 2010Q3

REPORT INFORMATION
  Report Type: 
  Country: None (occurrence: None)
  Receive Date: 20100709
  Receipt Date: 20081006
  Transmission Date: 20110219
  Serious: No
  Sender: FDA-Public Use
  Company Number: US-PFIZER INC-2007019562

PATIENT
  Sex: Female
  Weight: 70.76 kg

DRUGS (3)
  1. CHANTIX [Suspect]
     Indication: SMOKING CESSATION THERAPY
     Dates: start: 20070301, end: 20070326
  2. VYTORIN [Concomitant]
     Indication: BLOOD TRIGLYCERIDES INCREASED
  3. TRICOR [Concomitant]
     Indication: BLOOD TRIGLYCERIDES INCREASED

REACTIONS (8)
  - ANGER [None]
  - DEPRESSION [None]
  - DRUG INEFFECTIVE [None]
  - HEADACHE [None]
  - INSOMNIA [None]
  - IRRITABILITY [None]
  - NIGHTMARE [None]
  - SLEEP DISORDER [None]
